FAERS Safety Report 21713185 (Version 3)
Quarter: 2023Q1

REPORT INFORMATION
  Report Type: Report from Study
  Country: CA (occurrence: CA)
  Receive Date: 20221212
  Receipt Date: 20230208
  Transmission Date: 20230418
  Serious: Yes (Hospitalization, Other)
  Sender: FDA-Public Use
  Company Number: CA-JNJFOC-20221213876

PATIENT
  Age: 67 Year
  Sex: Male

DRUGS (2)
  1. STELARA [Suspect]
     Active Substance: USTEKINUMAB
     Indication: Psoriasis
     Dosage: RECEIVED TREATMENT ON 22/DEC/2021
     Route: 058
     Dates: start: 20150810
  2. STELARA [Suspect]
     Active Substance: USTEKINUMAB

REACTIONS (3)
  - Hospitalisation [Unknown]
  - Brain neoplasm [Unknown]
  - Surgery [Unknown]

NARRATIVE: CASE EVENT DATE: 20221206
